APPROVED DRUG PRODUCT: TENATHAN
Active Ingredient: BETHANIDINE SULFATE
Strength: 10MG
Dosage Form/Route: TABLET;ORAL
Application: N017675 | Product #001
Applicant: AH ROBINS CO
Approved: Approved Prior to Jan 1, 1982 | RLD: No | RS: No | Type: DISCN